FAERS Safety Report 6065565-5 (Version None)
Quarter: 2009Q1

REPORT INFORMATION
  Report Type: 
  Country: None (occurrence: None)
  Receive Date: 20090204
  Receipt Date: 20090129
  Transmission Date: 20090719
  Serious: No
  Sender: FDA-Public Use
  Company Number: US-B.I. PHARMACEUTICALS,INC./RIDGEFIELD-2009-BP-01165BP

PATIENT
  Sex: Female

DRUGS (3)
  1. ZANTAC 75 [Suspect]
     Indication: DYSPEPSIA
     Dosage: 75MG
     Route: 048
  2. UNSPECIFIED PAIN MEDICATIONS [Suspect]
     Indication: PAIN
  3. UNSPECIFIED ANTIBIOTICS [Concomitant]

REACTIONS (2)
  - DYSPEPSIA [None]
  - TOOTHACHE [None]
